FAERS Safety Report 4277007-0 (Version None)
Quarter: 2004Q1

REPORT INFORMATION
  Report Type: 
  Country: None (occurrence: None)
  Receive Date: 20040121
  Receipt Date: 20040121
  Transmission Date: 20041129
  Serious: Yes (Hospitalization)
  Sender: FDA-Public Use
  Company Number: None

PATIENT
  Sex: Female
  Weight: 65.4 kg

DRUGS (1)
  1. CISPLATIN [Suspect]
     Indication: CARCINOMA
     Dosage: 84 MG X 2 Q 3 WKS IV
     Route: 042
     Dates: start: 20031222, end: 20031117

REACTIONS (3)
  - DEHYDRATION [None]
  - DIARRHOEA [None]
  - DRUG TOXICITY [None]
